FAERS Safety Report 4990652-X (Version None)
Quarter: 2006Q2

REPORT INFORMATION
  Report Type: 
  Country: None (occurrence: None)
  Receive Date: 20060427
  Receipt Date: 20060416
  Transmission Date: 20061013
  Serious: Yes (Other)
  Sender: FDA-Public Use
  Company Number: 2006BH008247

PATIENT
  Age: 23 Year
  Sex: Male

DRUGS (9)
  1. CEFAZOLIN [Suspect]
     Indication: PROPHYLAXIS
     Dosage: 1 GM; IV
     Route: 042
  2. DESFLURANE [Concomitant]
  3. FENTANYL [Concomitant]
  4. PROPOFOL [Concomitant]
  5. MIDAZOLAM HCL [Concomitant]
  6. NIMBEX [Concomitant]
  7. MORPHINE SULFATE [Concomitant]
  8. KETOROLAC TROMETHAMINE [Concomitant]
  9. ONDANSETRON HCL [Concomitant]

REACTIONS (4)
  - BLOOD CREATININE INCREASED [None]
  - PLATELET COUNT INCREASED [None]
  - SERUM SICKNESS [None]
  - URINARY CASTS [None]
